FAERS Safety Report 9286746 (Version 2)
Quarter: 2013Q2

REPORT INFORMATION
  Report Type: Spontaneous
  Country: US (occurrence: US)
  Receive Date: 20130513
  Receipt Date: 20130626
  Transmission Date: 20140414
  Serious: Yes (Death)
  Sender: FDA-Public Use
  Company Number: US-TEVA-404548USA

PATIENT
  Age: 45 Year
  Sex: Male

DRUGS (1)
  1. FENTANYL CITRATE [Suspect]
     Route: 048
     Dates: end: 20130119

REACTIONS (1)
  - Death [Fatal]
